FAERS Safety Report 4448188-0 (Version None)
Quarter: 2004Q3

REPORT INFORMATION
  Report Type: 
  Country: None (occurrence: None)
  Receive Date: 20040813
  Receipt Date: 20040713
  Transmission Date: 20050211
  Serious: Yes (Hospitalization)
  Sender: FDA-Public Use
  Company Number: S04-USA-04104-01

PATIENT
  Age: 77 Year
  Sex: Female

DRUGS (10)
  1. NAMENDA [Suspect]
     Indication: DEMENTIA ALZHEIMER'S TYPE
     Dosage: 45 MG QD PO
     Route: 048
     Dates: start: 20040701, end: 20040712
  2. NAMENDA [Suspect]
     Indication: DEMENTIA ALZHEIMER'S TYPE
     Dates: end: 20040101
  3. EXELON [Concomitant]
  4. HALDOL [Concomitant]
  5. ZOCOR [Concomitant]
  6. ISOSORBIDE [Concomitant]
  7. SYNTHROID [Concomitant]
  8. MIACALCIN [Concomitant]
  9. POTASSIUM CHLORIDE [Concomitant]
  10. DOCUSATE [Concomitant]

REACTIONS (3)
  - ACCIDENTAL OVERDOSE [None]
  - BLOOD PRESSURE INCREASED [None]
  - CEREBROVASCULAR ACCIDENT [None]
